FAERS Safety Report 20556201 (Version 1)
Quarter: 2022Q1

REPORT INFORMATION
  Report Type: Other
  Country: None (occurrence: US)
  Receive Date: 20220305
  Receipt Date: 20220305
  Transmission Date: 20220423
  Serious: Yes (Other)
  Sender: FDA-Public Use
  Company Number: US-Eywa Pharma Inc.-2126483

PATIENT
  Age: 47 Year
  Sex: Female

DRUGS (2)
  1. ACETAZOLAMIDE [Suspect]
     Active Substance: ACETAZOLAMIDE
     Indication: Hypobarism
     Route: 065
  2. ESTROGENS [Suspect]
     Active Substance: ESTROGENS
     Route: 062

REACTIONS (1)
  - Ophthalmic vein thrombosis [Recovering/Resolving]
